FAERS Safety Report 7671548-1 (Version None)
Quarter: 2011Q3

REPORT INFORMATION
  Report Type: 
  Country: None (occurrence: None)
  Receive Date: 20110809
  Receipt Date: 20110809
  Transmission Date: 20111222
  Serious: Yes (Other)
  Sender: FDA-Public Use
  Company Number: None

PATIENT
  Age: 49 Year
  Sex: Male
  Weight: 81.646 kg

DRUGS (2)
  1. PROSCAR [Suspect]
     Dosage: 5MG
     Route: 048
     Dates: start: 20040410, end: 20110204
  2. FINASTERIDE [Concomitant]

REACTIONS (25)
  - LIBIDO DECREASED [None]
  - GLUCOSE TOLERANCE IMPAIRED [None]
  - AMNESIA [None]
  - INFERTILITY MALE [None]
  - NOCTURIA [None]
  - MYALGIA [None]
  - MENTAL DISORDER [None]
  - GYNAECOMASTIA [None]
  - ALOPECIA [None]
  - TESTICULAR DISORDER [None]
  - APHASIA [None]
  - FAT TISSUE INCREASED [None]
  - INSOMNIA [None]
  - ANXIETY [None]
  - IRRITABILITY [None]
  - DIARRHOEA [None]
  - FATIGUE [None]
  - SOCIAL AVOIDANT BEHAVIOUR [None]
  - POLYURIA [None]
  - MUSCLE ATROPHY [None]
  - ERECTILE DYSFUNCTION [None]
  - DISTURBANCE IN ATTENTION [None]
  - DEPRESSION [None]
  - PARTNER STRESS [None]
  - NIGHT SWEATS [None]
